FAERS Safety Report 18260730 (Version 2)
Quarter: 2020Q3

REPORT INFORMATION
  Report Type: Spontaneous
  Country: US (occurrence: US)
  Receive Date: 20200914
  Receipt Date: 20200921
  Transmission Date: 20201103
  Serious: No
  Sender: FDA-Public Use
  Company Number: US-GLAXOSMITHKLINE-US2020AMR182543

PATIENT
  Sex: Female

DRUGS (1)
  1. ZEJULA [Suspect]
     Active Substance: NIRAPARIB
     Indication: OVARIAN CANCER
     Dosage: 200 MG, QD
     Route: 048
     Dates: start: 20200822

REACTIONS (12)
  - Nausea [Not Recovered/Not Resolved]
  - Feeling abnormal [Unknown]
  - Eructation [Unknown]
  - Dyspepsia [Unknown]
  - Headache [Unknown]
  - Blood pressure increased [Unknown]
  - Chest discomfort [Unknown]
  - Change of bowel habit [Unknown]
  - Condition aggravated [Unknown]
  - Constipation [Unknown]
  - Platelet count decreased [Unknown]
  - Petechiae [Unknown]
